FAERS Safety Report 14633708 (Version 1)
Quarter: 2018Q1

REPORT INFORMATION
  Report Type: Report from Study
  Country: US (occurrence: US)
  Receive Date: 20180314
  Receipt Date: 20180314
  Transmission Date: 20180509
  Serious: Yes (Other)
  Sender: FDA-Public Use
  Company Number: US-CIPLA LTD.-2018US10861

PATIENT

DRUGS (2)
  1. LAMIVUDINE/NEVIRAPINE/STAVUDINE [Suspect]
     Active Substance: LAMIVUDINE\NEVIRAPINE\STAVUDINE
     Indication: HIV INFECTION
     Dosage: 150 MG/200 MG/40 MG
     Route: 065
  2. PACLITAXEL. [Suspect]
     Active Substance: PACLITAXEL
     Indication: KAPOSI^S SARCOMA AIDS RELATED
     Dosage: 100 MG/M2, INFUSED INTRAVENOUSLY OVER 3 HOURS EVERY 14 DAYS
     Route: 042

REACTIONS (1)
  - Malignant neoplasm progression [Unknown]
